FAERS Safety Report 8552350 (Version 2)
Quarter: 2013Q2

REPORT INFORMATION
  Report Type: Spontaneous
  Country: US (occurrence: None)
  Receive Date: 20120327
  Receipt Date: 20120709
  Transmission Date: 20140414
  Serious: Yes (Other)
  Sender: FDA-Public Use
  Company Number: PHHY2010US14437

PATIENT
  Age: 68 Year
  Sex: Female
  Weight: 96.1 kg

DRUGS (3)
  1. GLEEVEC (IMATINIB) [Suspect]
     Indication: CHRONIC MYELOID LEUKAEMIA
     Route: 048
     Dates: start: 20090113
  2. AMLODIPINE [Concomitant]
  3. TRAZODONE HYDROCHLORIDE [Concomitant]

REACTIONS (11)
  - HAEMATOCHEZIA [None]
  - MUSCLE SPASMS [None]
  - SWELLING [None]
  - NAUSEA [None]
  - EYELID OEDEMA [None]
  - JOINT SWELLING [None]
  - MYALGIA [None]
  - HYPERSENSITIVITY [None]
  - Weight increased [None]
  - Fluid retention [None]
  - Bone pain [None]
